FAERS Safety Report 4716119-1 (Version None)
Quarter: 2005Q2

REPORT INFORMATION
  Report Type: 
  Country: None (occurrence: None)
  Receive Date: 20050630
  Receipt Date: 20041028
  Transmission Date: 20051028
  Serious: Yes (Hospitalization, Other)
  Sender: FDA-Public Use
  Company Number: USA041082552

PATIENT
  Age: 73 Year
  Sex: Male

DRUGS (4)
  1. HUMALOG MIX 75/25 [Suspect]
  2. HUMULIN R [Suspect]
  3. HUMULIN 70/30 [Suspect]
  4. LANTUS [Concomitant]

REACTIONS (24)
  - APHASIA [None]
  - ARTHRALGIA [None]
  - ASTHENIA [None]
  - BLOOD GLUCOSE DECREASED [None]
  - BLOOD GLUCOSE INCREASED [None]
  - CHILLS [None]
  - COLD SWEAT [None]
  - ENCEPHALITIS [None]
  - GANGRENE [None]
  - HUNGER [None]
  - HYPERHIDROSIS [None]
  - HYPOTENSION [None]
  - HYPOTONIA [None]
  - INJECTION SITE PAIN [None]
  - LETHARGY [None]
  - MALAISE [None]
  - NAUSEA [None]
  - POOR PERIPHERAL CIRCULATION [None]
  - SPEECH DISORDER [None]
  - THROAT IRRITATION [None]
  - THROAT TIGHTNESS [None]
  - UPPER RESPIRATORY TRACT CONGESTION [None]
  - VIRUS SEROLOGY TEST POSITIVE [None]
  - WOUND [None]
